FAERS Safety Report 10248368 (Version 1)
Quarter: 2014Q2

REPORT INFORMATION
  Report Type: Spontaneous
  Country: ZA (occurrence: ZA)
  Receive Date: 20140620
  Receipt Date: 20140620
  Transmission Date: 20141212
  Serious: Yes (Death)
  Sender: FDA-Public Use
  Company Number: ZA-MERCK-1406ZAF009270

PATIENT
  Sex: Female

DRUGS (1)
  1. CANCIDAS 50MG [Suspect]
     Indication: ANTIFUNGAL TREATMENT

REACTIONS (1)
  - Acute respiratory failure [Fatal]
